FAERS Safety Report 9264392 (Version 1)
Quarter: 2013Q2

REPORT INFORMATION
  Report Type: Spontaneous
  Country: FR (occurrence: FR)
  Receive Date: 20130430
  Receipt Date: 20130430
  Transmission Date: 20140414
  Serious: Yes (Hospitalization)
  Sender: FDA-Public Use
  Company Number: FR-B.I. PHARMACEUTICALS,INC./RIDGEFIELD-2013-FF-01266FF

PATIENT
  Age: 85 Year
  Sex: Male

DRUGS (8)
  1. PRADAXA [Suspect]
     Indication: ATRIAL FIBRILLATION
     Dosage: 220 MG
     Route: 048
     Dates: start: 201210, end: 20130325
  2. MONO TILDIEM [Concomitant]
     Dosage: 200 MG
     Route: 048
  3. KARDEGIC [Concomitant]
     Dosage: 75 MG
     Route: 048
  4. LASILIX FAIBLE [Concomitant]
     Dosage: 20 MG
     Route: 048
  5. NATISPRAY [Concomitant]
     Route: 055
  6. ELISOR [Concomitant]
     Dosage: 40 MG
     Route: 048
  7. AIROMIR [Concomitant]
     Route: 055
  8. QVAR [Concomitant]
     Route: 055

REACTIONS (2)
  - Pulmonary embolism [Not Recovered/Not Resolved]
  - Drug ineffective [Unknown]
